FAERS Safety Report 8996731 (Version 1)
Quarter: 2012Q4

REPORT INFORMATION
  Report Type: Spontaneous
  Country: US (occurrence: None)
  Receive Date: 20121228
  Receipt Date: 20121228
  Transmission Date: 20130627
  Serious: Yes (Other)
  Sender: FDA-Public Use
  Company Number: None

PATIENT
  Age: 81 Year
  Sex: Female
  Weight: 63.5 kg

DRUGS (1)
  1. VICTOZA [Suspect]
     Indication: DIABETES
     Route: 042
     Dates: start: 20120413, end: 20120809

REACTIONS (3)
  - Jaw disorder [None]
  - Swelling [None]
  - Auricular swelling [None]
